FAERS Safety Report 20681854 (Version 1)
Quarter: 2022Q2

REPORT INFORMATION
  Report Type: Spontaneous
  Country: AU (occurrence: AU)
  Receive Date: 20220407
  Receipt Date: 20220407
  Transmission Date: 20220720
  Serious: Yes (Other)
  Sender: FDA-Public Use
  Company Number: AU-AMGEN-AUSSP2022057057

PATIENT
  Age: 12 Year
  Sex: Female

DRUGS (1)
  1. XGEVA [Suspect]
     Active Substance: DENOSUMAB
     Indication: Bone giant cell tumour benign
     Dosage: 70 MILLIGRAM/M2
     Route: 058

REACTIONS (6)
  - Neoplasm progression [Unknown]
  - Off label use [Unknown]
  - Hypercalcaemia [Recovered/Resolved]
  - Blood parathyroid hormone increased [Unknown]
  - Drug ineffective for unapproved indication [Unknown]
  - Hypocalcaemia [Recovered/Resolved]
